FAERS Safety Report 18118179 (Version 1)
Quarter: 2020Q3

REPORT INFORMATION
  Report Type: Spontaneous
  Country: CA (occurrence: CA)
  Receive Date: 20200805
  Receipt Date: 20200805
  Transmission Date: 20201103
  Serious: Yes (Hospitalization)
  Sender: FDA-Public Use
  Company Number: None

PATIENT
  Age: 52 Year
  Sex: Female
  Weight: 83.25 kg

DRUGS (2)
  1. INNOTOX [Suspect]
     Active Substance: BOTULINUM TOXIN TYPE A
     Indication: SKIN COSMETIC PROCEDURE
     Dosage: ?          QUANTITY:2 OUNCE(S);?
     Route: 030
  2. DERMAL FILLERS [Concomitant]

REACTIONS (4)
  - Infection [None]
  - Deformity [None]
  - Product contamination [None]
  - Visual impairment [None]

NARRATIVE: CASE EVENT DATE: 20200426
